FAERS Safety Report 8935580 (Version 1)
Quarter: 2012Q4

REPORT INFORMATION
  Report Type: 
  Country: US (occurrence: None)
  Receive Date: 20121128
  Receipt Date: 20121128
  Transmission Date: 20130627
  Serious: No
  Sender: FDA-Public Use
  Company Number: None

PATIENT
  Sex: Male
  Weight: 127.9 kg

DRUGS (4)
  1. ELOXATIN [Suspect]
  2. 5-FLUOROURACIL [Suspect]
  3. BEVACIZUMAB [Suspect]
  4. LEUCOVORIN CALCIUM [Suspect]

REACTIONS (2)
  - Neuropathy peripheral [None]
  - Activities of daily living impaired [None]
